FAERS Safety Report 8169440-1 (Version None)
Quarter: 2012Q1

REPORT INFORMATION
  Report Type: 
  Country: None (occurrence: None)
  Receive Date: 20120228
  Receipt Date: 20120220
  Transmission Date: 20120608
  Serious: Yes (Other)
  Sender: FDA-Public Use
  Company Number: US-BAYER-2012-012479

PATIENT
  Sex: Female

DRUGS (4)
  1. MIRENA [Suspect]
     Indication: CONTRACEPTION
     Dosage: 20 MCG/24HR, CONT
     Dates: start: 20120110, end: 20120126
  2. SYNTHROID [Concomitant]
     Indication: HYPOTHYROIDISM
  3. MIRENA [Suspect]
     Indication: MENORRHAGIA
  4. HYDROCHLOROTHIAZIDE [Concomitant]
     Indication: HYPERTENSION

REACTIONS (2)
  - GENITAL HAEMORRHAGE [None]
  - ABDOMINAL PAIN [None]
